FAERS Safety Report 8429038-4 (Version None)
Quarter: 2012Q2

REPORT INFORMATION
  Report Type: 
  Country: None (occurrence: None)
  Receive Date: 20120612
  Receipt Date: 20120604
  Transmission Date: 20120825
  Serious: Yes (Disabling)
  Sender: FDA-Public Use
  Company Number: AU-B.I. PHARMACEUTICALS,INC./RIDGEFIELD-2012-AU-01011AU

PATIENT
  Sex: Female
  Weight: 69 kg

DRUGS (8)
  1. METOPROLOL TARTRATE [Concomitant]
  2. PRADAXA [Suspect]
     Indication: CEREBROVASCULAR ACCIDENT PROPHYLAXIS
     Dates: start: 20110711, end: 20120514
  3. LIPITOR [Concomitant]
  4. DIGOXIN [Concomitant]
  5. PANADOL OSTEO [Concomitant]
  6. PRADAXA [Suspect]
     Indication: ATRIAL FIBRILLATION
  7. METFORMIN HCL [Concomitant]
  8. VENTOLIN [Concomitant]

REACTIONS (1)
  - DYSPNOEA [None]
